FAERS Safety Report 4884361-5 (Version None)
Quarter: 2006Q1

REPORT INFORMATION
  Report Type: 
  Country: None (occurrence: None)
  Receive Date: 20060117
  Receipt Date: 20060117
  Transmission Date: 20060701
  Serious: Yes (Hospitalization)
  Sender: FDA-Public Use
  Company Number: None

PATIENT
  Age: 63 Year
  Sex: Female

DRUGS (10)
  1. LISINOPRIL [Suspect]
     Indication: HYPERTENSION
     Dosage: 10 MG QD PO
     Route: 048
     Dates: start: 20031217, end: 20040319
  2. COUMADIN [Concomitant]
  3. ATENOLOL [Concomitant]
  4. EZETIMIBE [Concomitant]
  5. TOPAMAX [Concomitant]
  6. ALBUTENOL [Concomitant]
  7. LEVAQUIN [Concomitant]
  8. PROCHLORPENAZINE [Concomitant]
  9. GLIPIZIDE [Concomitant]
  10. ZOCOR [Concomitant]

REACTIONS (1)
  - PANCREATITIS [None]
